FAERS Safety Report 9547341 (Version 1)
Quarter: 2013Q3

REPORT INFORMATION
  Report Type: Spontaneous
  Country: FR (occurrence: FR)
  Receive Date: 20130924
  Receipt Date: 20130924
  Transmission Date: 20140515
  Serious: Yes (Hospitalization, Other)
  Sender: FDA-Public Use
  Company Number: FR-MERCK-1309FRA009293

PATIENT
  Age: 46 Year
  Sex: Female

DRUGS (3)
  1. VIRAFERONPEG [Suspect]
     Indication: HEPATITIS C
     Dosage: UNK
     Route: 058
  2. REBETOL [Suspect]
     Indication: HEPATITIS B
     Dosage: UNK
     Route: 048
  3. TELAPREVIR [Concomitant]
     Indication: HEPATITIS C

REACTIONS (5)
  - Respiratory failure [Recovering/Resolving]
  - Lymphopenia [Unknown]
  - C-reactive protein increased [Unknown]
  - Pyrexia [Unknown]
  - Rash [Unknown]
